FAERS Safety Report 9180603 (Version 1)
Quarter: 2013Q1

REPORT INFORMATION
  Report Type: Spontaneous
  Country: US (occurrence: US)
  Receive Date: 20130322
  Receipt Date: 20130322
  Transmission Date: 20140127
  Serious: No
  Sender: FDA-Public Use
  Company Number: US-ROXANE LABORATORIES, INC.-2013-RO-00408RO

PATIENT
  Age: 66 Year
  Sex: Male

DRUGS (6)
  1. MERCAPTOPURINE [Suspect]
     Indication: COLITIS ULCERATIVE
     Dosage: 50 MG
     Route: 048
     Dates: start: 201211
  2. CELEXA [Concomitant]
  3. ATORVASTATIN [Concomitant]
  4. LISINOPRIL [Concomitant]
     Indication: HYPERTENSION
  5. APRESOLINE [Concomitant]
     Indication: CARDIAC DISORDER
  6. FLECAINIDE ACETATE [Concomitant]

REACTIONS (3)
  - Stomatitis [Not Recovered/Not Resolved]
  - Arthralgia [Not Recovered/Not Resolved]
  - Alopecia [Not Recovered/Not Resolved]
